FAERS Safety Report 4888115-5 (Version None)
Quarter: 2006Q1

REPORT INFORMATION
  Report Type: 
  Country: None (occurrence: None)
  Receive Date: 20060119
  Receipt Date: 20060110
  Transmission Date: 20060701
  Serious: Yes (Disabling, Other)
  Sender: FDA-Public Use
  Company Number: 2005170366

PATIENT
  Sex: Male

DRUGS (5)
  1. LIPITOR [Suspect]
     Indication: ILL-DEFINED DISORDER
  2. NEXIUM [Concomitant]
  3. TOPROL (METOPROL) [Concomitant]
  4. PLAVIX [Concomitant]
  5. ATACAND [Concomitant]

REACTIONS (4)
  - BLOOD CHOLESTEROL INCREASED [None]
  - HYPERTENSION [None]
  - PROGRESSIVE MASSIVE FIBROSIS [None]
  - PULMONARY FIBROSIS [None]
